FAERS Safety Report 18424826 (Version 1)
Quarter: 2020Q4

REPORT INFORMATION
  Report Type: Spontaneous
  Country: PT (occurrence: PT)
  Receive Date: 20201026
  Receipt Date: 20201026
  Transmission Date: 20210114
  Serious: Yes (Hospitalization, Other)
  Sender: FDA-Public Use
  Company Number: PT-ACCORD-206114

PATIENT
  Age: 60 Year
  Sex: Male

DRUGS (1)
  1. OLMESARTAN [Suspect]
     Active Substance: OLMESARTAN
     Indication: HYPERTENSION
     Route: 048

REACTIONS (9)
  - Sprue-like enteropathy [Recovered/Resolved]
  - Normochromic normocytic anaemia [Recovered/Resolved]
  - Weight decreased [Recovered/Resolved]
  - Gastrointestinal disorder [Recovered/Resolved]
  - Diarrhoea [Recovered/Resolved]
  - Iron deficiency anaemia [Recovered/Resolved]
  - Clostridium difficile infection [Recovered/Resolved]
  - Intestinal villi atrophy [Recovered/Resolved]
  - Myalgia [Recovered/Resolved]
